FAERS Safety Report 21139379 (Version 7)
Quarter: 2023Q4

REPORT INFORMATION
  Report Type: Spontaneous
  Country: US (occurrence: US)
  Receive Date: 20220727
  Receipt Date: 20231121
  Transmission Date: 20240110
  Serious: Yes (Other)
  Sender: FDA-Public Use
  Company Number: US-BRISTOL-MYERS SQUIBB COMPANY-2022-080050

PATIENT
  Age: 86 Year
  Sex: Female
  Weight: 79.3 kg

DRUGS (4)
  1. REVLIMID [Suspect]
     Active Substance: LENALIDOMIDE
     Indication: Plasma cell myeloma
     Dosage: 1 CAPSULE (10 MILLIGRAM), DAILY AT BEDTIME FOR DAYS 1-21 OF EACH 28 DAY CYCLE
     Route: 048
     Dates: start: 20220606
  2. REVLIMID [Suspect]
     Active Substance: LENALIDOMIDE
     Indication: Monoclonal gammopathy
     Dosage: 1 CAPSULE (10 MILLIGRAM), DAILY AT BEDTIME FOR DAYS 1-21 OF EACH 28 DAY CYCLE
     Route: 048
  3. UNSPECIFIED INGREDIENT [Concomitant]
     Active Substance: UNSPECIFIED INGREDIENT
     Indication: Product used for unknown indication
  4. GABAPENTIN [Concomitant]
     Active Substance: GABAPENTIN
     Indication: Product used for unknown indication

REACTIONS (11)
  - Swelling [Unknown]
  - Chest discomfort [Unknown]
  - Peripheral swelling [Not Recovered/Not Resolved]
  - Blood potassium decreased [Unknown]
  - Tenderness [Unknown]
  - Diarrhoea [Unknown]
  - Fall [Unknown]
  - Pollakiuria [Unknown]
  - Balance disorder [Unknown]
  - Traumatic fracture [Unknown]
  - Insomnia [Unknown]

NARRATIVE: CASE EVENT DATE: 20220101
